FAERS Safety Report 5327648-4 (Version None)
Quarter: 2007Q2

REPORT INFORMATION
  Report Type: 
  Country: None (occurrence: None)
  Receive Date: 20070517
  Receipt Date: 20070511
  Transmission Date: 20071010
  Serious: Yes (Hospitalization, Other)
  Sender: FDA-Public Use
  Company Number: B0432089A

PATIENT
  Age: 35 Year
  Sex: Female

DRUGS (5)
  1. PAXIL [Suspect]
     Indication: SOCIAL PHOBIA
     Dates: start: 20060330, end: 20060712
  2. PAXIL [Suspect]
     Dosage: 20MG PER DAY
     Route: 048
     Dates: start: 20060330, end: 20060720
  3. CLARITIN [Concomitant]
     Route: 048
     Dates: start: 20060309, end: 20060420
  4. ALDECIN [Concomitant]
     Route: 045
     Dates: start: 20060309, end: 20060420
  5. ZADITEN [Concomitant]
     Route: 031
     Dates: start: 20060309, end: 20060429

REACTIONS (1)
  - ABORTION MISSED [None]
